FAERS Safety Report 23979919 (Version 1)
Quarter: 2024Q2

REPORT INFORMATION
  Report Type: Spontaneous
  Country: JP (occurrence: JP)
  Receive Date: 20240617
  Receipt Date: 20240617
  Transmission Date: 20240716
  Serious: Yes (Other)
  Sender: FDA-Public Use
  Company Number: JP-STRIDES ARCOLAB LIMITED-2024SP006857

PATIENT
  Age: 46 Year
  Sex: Female

DRUGS (3)
  1. CABERGOLINE [Suspect]
     Active Substance: CABERGOLINE
     Indication: Hyperprolactinaemia
     Dosage: 0.25 MILLIGRAM PER WEEK
     Route: 065
  2. CABERGOLINE [Suspect]
     Active Substance: CABERGOLINE
     Dosage: 1 MILLIGRAM PER WEEK
     Route: 065
  3. CABERGOLINE [Suspect]
     Active Substance: CABERGOLINE
     Dosage: 7 MILLIGRAM PER WEEK
     Route: 065

REACTIONS (1)
  - Drug ineffective [Unknown]
